FAERS Safety Report 14187518 (Version 1)
Quarter: 2017Q4

REPORT INFORMATION
  Report Type: Spontaneous
  Country: US (occurrence: None)
  Receive Date: 20171113
  Receipt Date: 20171113
  Transmission Date: 20180321
  Serious: No
  Sender: FDA-Public Use
  Company Number: None

PATIENT
  Age: 66 Year
  Sex: Male

DRUGS (2)
  1. TACROLIMUS 1MG ACCORD [Suspect]
     Active Substance: TACROLIMUS
     Indication: GLOMERULONEPHRITIS MEMBRANOUS
     Route: 048
     Dates: start: 20170505, end: 20170801
  2. TACROLIMUS 1MG ACCORD [Suspect]
     Active Substance: TACROLIMUS
     Indication: HAEMATURIA
     Route: 048
     Dates: start: 20170505, end: 20170801

REACTIONS (2)
  - Contusion [None]
  - Laceration [None]

NARRATIVE: CASE EVENT DATE: 20170701
